FAERS Safety Report 25130948 (Version 1)
Quarter: 2025Q1

REPORT INFORMATION
  Report Type: Spontaneous
  Country: CN (occurrence: CN)
  Receive Date: 20250327
  Receipt Date: 20250327
  Transmission Date: 20250409
  Serious: Yes (Other)
  Sender: MERCK SHARP & DOHME LLC
  Company Number: CN-009507513-2267429

PATIENT
  Age: 92 Year
  Sex: Male
  Weight: 65 kg

DRUGS (2)
  1. ERTAPENEM [Suspect]
     Active Substance: ERTAPENEM
     Indication: Anti-infective therapy
     Dosage: 1G, 1 TIME/DAY (QD)
     Route: 041
     Dates: start: 20250311, end: 20250312
  2. SODIUM CHLORIDE [Concomitant]
     Active Substance: SODIUM CHLORIDE
     Indication: Medication dilution
     Dosage: 250 ML, 1 TIME/DAY (QD)
     Route: 041
     Dates: start: 20250311, end: 20250312

REACTIONS (3)
  - Altered state of consciousness [Recovered/Resolved]
  - Restlessness [Recovered/Resolved]
  - Disorganised speech [Recovered/Resolved]

NARRATIVE: CASE EVENT DATE: 20250311
